FAERS Safety Report 17633455 (Version 3)
Quarter: 2020Q2

REPORT INFORMATION
  Report Type: Spontaneous
  Country: GB (occurrence: GB)
  Receive Date: 20200407
  Receipt Date: 20200618
  Transmission Date: 20200713
  Serious: Yes (Other)
  Sender: FDA-Public Use
  Company Number: GB-AUROBINDO-AUR-APL-2020-014093

PATIENT
  Age: 36 Year
  Sex: Female

DRUGS (7)
  1. PREGABALIN 150 MG [Suspect]
     Active Substance: PREGABALIN
     Indication: GENERALISED ANXIETY DISORDER
     Dosage: 150 MILLIGRAM, ONCE A DAY
     Route: 065
  2. LORAZEPAM. [Concomitant]
     Active Substance: LORAZEPAM
     Indication: ANXIETY
     Dosage: 1-2 MG, AS REQUIRED (MAX 4MG/24 H)
     Route: 065
  3. VENLAFAXINE [Suspect]
     Active Substance: VENLAFAXINE HYDROCHLORIDE
     Indication: MIXED ANXIETY AND DEPRESSIVE DISORDER
     Dosage: 225 MILLIGRAM, ONCE A DAY IN THE MORNING
     Route: 065
  4. PREGABALIN 150 MG [Suspect]
     Active Substance: PREGABALIN
     Indication: MIXED ANXIETY AND DEPRESSIVE DISORDER
     Dosage: 150 MILLIGRAM, 3 TIMES A DAY
     Route: 065
  5. LORAZEPAM. [Concomitant]
     Active Substance: LORAZEPAM
     Indication: AGITATION
  6. LORAZEPAM. [Concomitant]
     Active Substance: LORAZEPAM
     Indication: MIXED ANXIETY AND DEPRESSIVE DISORDER
  7. PREGABALIN 150 MG [Suspect]
     Active Substance: PREGABALIN
     Indication: ANXIETY
     Dosage: 150 MILLIGRAM, TWO TIMES A DAY
     Route: 065

REACTIONS (7)
  - Agitation [Recovered/Resolved]
  - Off label use [Unknown]
  - Drug interaction [Recovered/Resolved]
  - Drug effective for unapproved indication [Unknown]
  - Hallucination, visual [Recovered/Resolved]
  - Therapeutic product effect incomplete [Recovered/Resolved]
  - Feeling abnormal [Recovered/Resolved]
